FAERS Safety Report 20342790 (Version 1)
Quarter: 2022Q1

REPORT INFORMATION
  Report Type: Spontaneous
  Country: US (occurrence: US)
  Receive Date: 20220117
  Receipt Date: 20220117
  Transmission Date: 20220424
  Serious: Yes (Disabling, Other)
  Sender: FDA-Public Use
  Company Number: US-ELI_LILLY_AND_COMPANY-US202201003913

PATIENT
  Sex: Female

DRUGS (4)
  1. INSULIN LISPRO [Suspect]
     Active Substance: INSULIN LISPRO
     Indication: Type 2 diabetes mellitus
     Dosage: UNK UNK, PRN
     Route: 058
  2. INSULIN LISPRO [Suspect]
     Active Substance: INSULIN LISPRO
     Indication: Type 2 diabetes mellitus
     Dosage: UNK UNK, PRN
     Route: 058
  3. INSULIN LISPRO [Suspect]
     Active Substance: INSULIN LISPRO
     Dosage: UNK UNK, PRN
     Route: 058
  4. INSULIN LISPRO [Suspect]
     Active Substance: INSULIN LISPRO
     Dosage: UNK UNK, PRN
     Route: 058

REACTIONS (11)
  - Postoperative wound infection [Unknown]
  - Peripheral arterial occlusive disease [Unknown]
  - Myocardial infarction [Recovered/Resolved]
  - Diabetic ulcer [Unknown]
  - Depression [Not Recovered/Not Resolved]
  - Illness [Unknown]
  - Pain in extremity [Unknown]
  - Localised infection [Unknown]
  - Blood glucose increased [Unknown]
  - Stress [Not Recovered/Not Resolved]
  - Phantom limb syndrome [Not Recovered/Not Resolved]

NARRATIVE: CASE EVENT DATE: 20090101
